FAERS Safety Report 8230988-2 (Version None)
Quarter: 2012Q1

REPORT INFORMATION
  Report Type: 
  Country: None (occurrence: None)
  Receive Date: 20120320
  Receipt Date: 20120309
  Transmission Date: 20120608
  Serious: Yes (Hospitalization, Other)
  Sender: FDA-Public Use
  Company Number: AUR-APL-2012-01419

PATIENT
  Age: 79 Year
  Sex: Female

DRUGS (7)
  1. GLYBURIDE [Suspect]
     Indication: PRODUCT USED FOR UNKNOWN INDICATION
  2. METOPROLOL TARTRATE [Suspect]
     Indication: PRODUCT USED FOR UNKNOWN INDICATION
  3. SERTRALINE HYDROCHLORIDE [Suspect]
     Indication: ANXIETY
     Dosage: 150 ,G )150 ,MG, IN THE MORNING
  4. SERTRALINE HYDROCHLORIDE [Suspect]
     Indication: INSOMNIA
     Dosage: 150 ,G )150 ,MG, IN THE MORNING
  5. SERTRALINE HYDROCHLORIDE [Suspect]
     Indication: DECREASED APPETITE
     Dosage: 150 ,G )150 ,MG, IN THE MORNING
  6. LORAZEPAM [Suspect]
     Indication: INSOMNIA
     Dosage: 0.5 MG (0.5 MG, 1 IN 1 D), UNKNOWN
  7. MIRTAZAPINE [Suspect]
     Indication: INSOMNIA
     Dosage: AT BEDTIME, UNKNOWN

REACTIONS (8)
  - BLOOD PRESSURE INCREASED [None]
  - LOSS OF CONSCIOUSNESS [None]
  - DEPRESSION [None]
  - LETHARGY [None]
  - BLOOD GLUCOSE INCREASED [None]
  - ANGER [None]
  - ALCOHOLISM [None]
  - INHIBITORY DRUG INTERACTION [None]
